FAERS Safety Report 4494906-5 (Version None)
Quarter: 2004Q4

REPORT INFORMATION
  Report Type: 
  Country: None (occurrence: None)
  Receive Date: 20041103
  Receipt Date: 20041019
  Transmission Date: 20050328
  Serious: Yes (Death, Hospitalization)
  Sender: FDA-Public Use
  Company Number: 209894

PATIENT
  Age: 65 Year
  Sex: Female
  Weight: 50.8 kg

DRUGS (9)
  1. AVASTIN [Suspect]
     Indication: PANCREATIC CARCINOMA
     Dosage: 10 MG/KG, INTRAVENOUS
     Route: 042
     Dates: start: 20041006, end: 20041006
  2. CARAFATE [Concomitant]
  3. REGLAN [Concomitant]
  4. PEPCID [Concomitant]
  5. WELLBUTRIN [Concomitant]
  6. NORVASC [Concomitant]
  7. XANAX [Concomitant]
  8. IRON (IRON NOS) [Concomitant]
  9. MULTI-VITAMINS [Concomitant]

REACTIONS (17)
  - BLOOD ALBUMIN DECREASED [None]
  - BLOOD ALKALINE PHOSPHATASE INCREASED [None]
  - CARDIAC ARREST [None]
  - DEHYDRATION [None]
  - HAEMATOCRIT DECREASED [None]
  - HAEMOGLOBIN DECREASED [None]
  - HEART RATE INCREASED [None]
  - ILEUS [None]
  - NAUSEA [None]
  - PCO2 DECREASED [None]
  - PHLEBOLITH [None]
  - PLATELET COUNT DECREASED [None]
  - SCAN ABDOMEN ABNORMAL [None]
  - SMALL INTESTINAL OBSTRUCTION [None]
  - TRACHEAL DISORDER [None]
  - URINE OUTPUT DECREASED [None]
  - VOMITING [None]
